FAERS Safety Report 6790030-7 (Version None)
Quarter: 2010Q2

REPORT INFORMATION
  Report Type: 
  Country: None (occurrence: None)
  Receive Date: 20100624
  Receipt Date: 20100611
  Transmission Date: 20101027
  Serious: Yes (Hospitalization)
  Sender: FDA-Public Use
  Company Number: ES-ELI_LILLY_AND_COMPANY-ES201006003407

PATIENT
  Sex: Female
  Weight: 80 kg

DRUGS (4)
  1. FORTEO [Suspect]
     Indication: OSTEOPOROSIS
     Dosage: 20 UG, DAILY (1/D)
     Route: 058
  2. ATENOLOL [Concomitant]
     Indication: HYPERTENSION
     Dosage: 50 MG, DAILY (1/D)
     Route: 048
  3. OMEPRAZOLE [Concomitant]
     Indication: GASTRIC DISORDER
     Dosage: UNK, DAILY (1/D)
     Route: 048
  4. FLUOXETINA [Concomitant]
     Dosage: UNK, DAILY (1/D)
     Route: 048

REACTIONS (2)
  - BONE FISSURE [None]
  - DEVICE DISLOCATION [None]
